FAERS Safety Report 20015684 (Version 1)
Quarter: 2021Q4

REPORT INFORMATION
  Report Type: Spontaneous
  Country: US (occurrence: None)
  Receive Date: 20211101
  Receipt Date: 20211101
  Transmission Date: 20220303
  Serious: Yes (Hospitalization)
  Sender: FDA-Public Use
  Company Number: None

PATIENT
  Age: 58 Year
  Sex: Male
  Weight: 108.9 kg

DRUGS (1)
  1. GAMUNEX-C [Suspect]
     Active Substance: HUMAN IMMUNOGLOBULIN G
     Dosage: OTHER FREQUENCY : WEEKLY;?
     Route: 058

REACTIONS (6)
  - Headache [None]
  - Nausea [None]
  - Dyspnoea [None]
  - Infusion related reaction [None]
  - Infusion site erythema [None]
  - Chills [None]

NARRATIVE: CASE EVENT DATE: 20211008
